FAERS Safety Report 8845709 (Version 3)
Quarter: 2015Q2

REPORT INFORMATION
  Report Type: Spontaneous
  Country: US (occurrence: US)
  Receive Date: 20121017
  Receipt Date: 20150421
  Transmission Date: 20150821
  Serious: Yes (Disabling)
  Sender: FDA-Public Use
  Company Number: US-009507513-1210USA007115

PATIENT
  Sex: Male
  Weight: 76.19 kg

DRUGS (1)
  1. PROPECIA [Suspect]
     Active Substance: FINASTERIDE
     Indication: ALOPECIA
     Dosage: 1 MG, QD
     Route: 048
     Dates: start: 2011, end: 201201

REACTIONS (21)
  - Testicular pain [Unknown]
  - Libido decreased [Not Recovered/Not Resolved]
  - Productive cough [Unknown]
  - Tremor [Unknown]
  - Ejaculation failure [Not Recovered/Not Resolved]
  - Flat affect [Unknown]
  - Ejaculation disorder [Not Recovered/Not Resolved]
  - Haemangioma [Unknown]
  - Ear pain [Unknown]
  - Disturbance in attention [Unknown]
  - Sexual dysfunction [Not Recovered/Not Resolved]
  - Wisdom teeth removal [Unknown]
  - Anal pruritus [Unknown]
  - Feeling abnormal [Unknown]
  - Dizziness [Unknown]
  - Cognitive disorder [Not Recovered/Not Resolved]
  - Anxiety [Not Recovered/Not Resolved]
  - Haemorrhoids [Unknown]
  - Melanocytic naevus [Unknown]
  - Erectile dysfunction [Not Recovered/Not Resolved]
  - Depression [Not Recovered/Not Resolved]

NARRATIVE: CASE EVENT DATE: 20110408
